FAERS Safety Report 14576710 (Version 2)
Quarter: 2018Q4

REPORT INFORMATION
  Report Type: Spontaneous
  Country: US (occurrence: US)
  Receive Date: 20180227
  Receipt Date: 20181003
  Transmission Date: 20190204
  Serious: Yes (Hospitalization, Other)
  Sender: FDA-Public Use
  Company Number: US-AMGEN-USASP2018025521

PATIENT
  Age: 96 Year
  Sex: Female
  Weight: 43.54 kg

DRUGS (9)
  1. SINGULAIR [Concomitant]
     Active Substance: MONTELUKAST SODIUM
     Indication: FOOD ALLERGY
  2. SINGULAIR [Concomitant]
     Active Substance: MONTELUKAST SODIUM
     Indication: PRURITUS
  3. SINGULAIR [Concomitant]
     Active Substance: MONTELUKAST SODIUM
     Indication: NONSPECIFIC REACTION
  4. SINGULAIR [Concomitant]
     Active Substance: MONTELUKAST SODIUM
     Indication: SOLAR DERMATITIS
  5. ENBREL [Suspect]
     Active Substance: ETANERCEPT
     Dosage: UNK
     Route: 065
  6. PAXIL [Concomitant]
     Active Substance: PAROXETINE HYDROCHLORIDE
     Indication: PAIN IN EXTREMITY
     Dosage: HALF, UNK, QD
  7. SINGULAIR [Concomitant]
     Active Substance: MONTELUKAST SODIUM
     Indication: HYPERSENSITIVITY
     Dosage: UNK
  8. SINGULAIR [Concomitant]
     Active Substance: MONTELUKAST SODIUM
     Indication: MILIARIA
  9. ENBREL [Suspect]
     Active Substance: ETANERCEPT
     Indication: RHEUMATOID ARTHRITIS
     Dosage: 50 MG, QWK
     Route: 065
     Dates: start: 1998

REACTIONS (15)
  - Rheumatoid arthritis [Unknown]
  - Blindness [Unknown]
  - Gastrooesophageal reflux disease [Recovering/Resolving]
  - Influenza [Unknown]
  - Solar dermatitis [Unknown]
  - Deafness [Recovering/Resolving]
  - Wheelchair user [Unknown]
  - Food allergy [Unknown]
  - Miliaria [Unknown]
  - Fear of injection [Unknown]
  - Ill-defined disorder [Unknown]
  - Pruritus [Unknown]
  - Infection [Unknown]
  - Injection site vesicles [Unknown]
  - Nonspecific reaction [Unknown]

NARRATIVE: CASE EVENT DATE: 201808
